FAERS Safety Report 19233760 (Version 3)
Quarter: 2021Q3

REPORT INFORMATION
  Report Type: Report from Study
  Country: US (occurrence: US)
  Receive Date: 20210507
  Receipt Date: 20210810
  Transmission Date: 20211014
  Serious: Yes (Hospitalization, Other)
  Sender: FDA-Public Use
  Company Number: US-TAKEDA-2020TUS055984

PATIENT
  Sex: Male

DRUGS (12)
  1. TEDUGLUTIDE [Suspect]
     Active Substance: TEDUGLUTIDE
     Dosage: 1.355 MILLIGRAM, DAILY
     Route: 058
     Dates: start: 202010
  2. TEDUGLUTIDE [Suspect]
     Active Substance: TEDUGLUTIDE
     Indication: SHORT-BOWEL SYNDROME
     Dosage: 1.355 MILLIGRAM, QD
     Route: 058
     Dates: start: 20201022
  3. TEDUGLUTIDE [Suspect]
     Active Substance: TEDUGLUTIDE
     Indication: SHORT-BOWEL SYNDROME
     Dosage: 1.355 MILLIGRAM, QD
     Route: 058
     Dates: start: 20201022
  4. TEDUGLUTIDE [Suspect]
     Active Substance: TEDUGLUTIDE
     Indication: SHORT-BOWEL SYNDROME
     Dosage: 1.355 MILLIGRAM, QD
     Route: 058
     Dates: start: 20201022
  5. TEDUGLUTIDE [Suspect]
     Active Substance: TEDUGLUTIDE
     Dosage: 0.135 MILLILITER, QD
     Route: 058
     Dates: start: 202010
  6. TEDUGLUTIDE [Suspect]
     Active Substance: TEDUGLUTIDE
     Dosage: 1.355 MILLIGRAM, DAILY
     Route: 058
     Dates: start: 202010
  7. TEDUGLUTIDE [Suspect]
     Active Substance: TEDUGLUTIDE
     Dosage: 1.355 MILLIGRAM, DAILY
     Route: 058
     Dates: start: 202010
  8. TEDUGLUTIDE [Suspect]
     Active Substance: TEDUGLUTIDE
     Dosage: 0.135 MILLILITER, QD
     Route: 058
     Dates: start: 202010
  9. TEDUGLUTIDE [Suspect]
     Active Substance: TEDUGLUTIDE
     Dosage: 1.355 MILLIGRAM, DAILY
     Route: 058
     Dates: start: 202010
  10. TEDUGLUTIDE [Suspect]
     Active Substance: TEDUGLUTIDE
     Indication: SHORT-BOWEL SYNDROME
     Dosage: 1.355 MILLIGRAM, QD
     Route: 058
     Dates: start: 20201022
  11. TEDUGLUTIDE [Suspect]
     Active Substance: TEDUGLUTIDE
     Dosage: 0.135 MILLILITER, QD
     Route: 058
     Dates: start: 202010
  12. TEDUGLUTIDE [Suspect]
     Active Substance: TEDUGLUTIDE
     Dosage: 0.135 MILLILITER, QD
     Route: 058
     Dates: start: 202010

REACTIONS (4)
  - Gastrointestinal disorder [Unknown]
  - Foreign body in gastrointestinal tract [Recovered/Resolved]
  - Product dose omission issue [Unknown]
  - Injection site mass [Unknown]
